FAERS Safety Report 6631128-3 (Version None)
Quarter: 2010Q1

REPORT INFORMATION
  Report Type: 
  Country: None (occurrence: None)
  Receive Date: 20100309
  Receipt Date: 20100222
  Transmission Date: 20100710
  Serious: Yes (Hospitalization, Other)
  Sender: FDA-Public Use
  Company Number: 233520J09USA

PATIENT
  Age: 41 Year
  Sex: Female
  Weight: 140 kg

DRUGS (21)
  1. REBIF [Suspect]
     Indication: MULTIPLE SCLEROSIS
     Dosage: 44MCG, 3 IN 1 WEEKS, SUBCUTANEOUS
     Route: 058
     Dates: start: 20081117, end: 20091014
  2. REBIF [Suspect]
     Indication: MULTIPLE SCLEROSIS
     Dosage: 44MCG, 3 IN 1 WEEKS, SUBCUTANEOUS
     Route: 058
     Dates: start: 20091113
  3. LISINOPRIL [Concomitant]
  4. ZOCOR [Concomitant]
  5. NEURONTIN [Concomitant]
  6. AMLODIPINE [Concomitant]
  7. AMITRIPTYLINE HYDROCHLORIDE [Concomitant]
  8. VITAMIN B12 [Concomitant]
  9. PRILOSEC [Concomitant]
  10. WELLBUTRIN XL [Concomitant]
  11. VITAMIN D [Concomitant]
  12. MAXZIDE (DYZIDE) [Concomitant]
  13. MECLIZINE [Concomitant]
  14. VALIUM [Concomitant]
  15. PERCOCET [Concomitant]
  16. IRON (IRON) [Concomitant]
  17. CELEXA [Concomitant]
  18. XANAX [Concomitant]
  19. BACLOFEN (BECLOFEN) [Concomitant]
  20. FISH OIL (FISH OIL) [Concomitant]
  21. PHENERGAN (PROMETHAZINE) [Concomitant]

REACTIONS (6)
  - DEEP VEIN THROMBOSIS [None]
  - LEUKOPENIA [None]
  - PNEUMONIA [None]
  - POST THROMBOTIC SYNDROME [None]
  - PULMONARY EMBOLISM [None]
  - RENAL FAILURE ACUTE [None]
